FAERS Safety Report 15684795 (Version 1)
Quarter: 2018Q4

REPORT INFORMATION
  Report Type: Spontaneous
  Country: CN (occurrence: CN)
  Receive Date: 20181204
  Receipt Date: 20181204
  Transmission Date: 20190205
  Serious: Yes (Life-Threatening)
  Sender: FDA-Public Use
  Company Number: CN-JNJFOC-20181130913

PATIENT
  Age: 23 Year
  Sex: Male

DRUGS (2)
  1. ACETAMINOPHEN. [Suspect]
     Active Substance: ACETAMINOPHEN
     Route: 065
  2. ACETAMINOPHEN. [Suspect]
     Active Substance: ACETAMINOPHEN
     Indication: PRODUCT USED FOR UNKNOWN INDICATION
     Route: 065

REACTIONS (8)
  - Acute hepatic failure [Unknown]
  - Cardio-respiratory arrest [Unknown]
  - Hypoxic-ischaemic encephalopathy [Unknown]
  - Overdose [Unknown]
  - Septic shock [Unknown]
  - Acute kidney injury [Recovered/Resolved]
  - Lung infection [Unknown]
  - Coma [Not Recovered/Not Resolved]
